FAERS Safety Report 9682720 (Version 1)
Quarter: 2013Q4

REPORT INFORMATION
  Report Type: Spontaneous
  Country: US (occurrence: US)
  Receive Date: 20131025
  Receipt Date: 20131025
  Transmission Date: 20140711
  Serious: Yes (Other)
  Sender: FDA-Public Use
  Company Number: US-DRREDDYS-USA/USA/13/0035162

PATIENT
  Age: 37 Year
  Sex: Male

DRUGS (2)
  1. ZOLPIDEM [Suspect]
     Indication: INSOMNIA
     Route: 065
  2. BUPROPION [Concomitant]
     Indication: NICOTINE DEPENDENCE

REACTIONS (5)
  - Intentional self-injury [Unknown]
  - Amnesia [Unknown]
  - Disorientation [Unknown]
  - Incoherent [Unknown]
  - Insomnia [Unknown]
